FAERS Safety Report 8482837 (Version 7)
Quarter: 2014Q3

REPORT INFORMATION
  Report Type: Spontaneous
  Country: US (occurrence: US)
  Receive Date: 20120329
  Receipt Date: 20140922
  Transmission Date: 20150326
  Serious: Yes (Hospitalization, Disabling, Other)
  Sender: FDA-Public Use
  Company Number: US-MERCK-1203USA03319

PATIENT
  Sex: Female
  Weight: 56.92 kg

DRUGS (7)
  1. FOSAMAX [Suspect]
     Active Substance: ALENDRONATE SODIUM
     Dosage: 70 MG, UNK
     Route: 048
     Dates: start: 20070126, end: 200705
  2. FOSAMAX [Suspect]
     Active Substance: ALENDRONATE SODIUM
     Indication: OSTEOPOROSIS
     Dosage: 10 MG, QD
     Route: 048
     Dates: start: 199610, end: 200612
  3. FOSAMAX [Suspect]
     Active Substance: ALENDRONATE SODIUM
     Indication: OSTEOPOROSIS
     Dosage: 70 MG, UNK
     Route: 048
     Dates: start: 20081126
  4. CALCIUM (UNSPECIFIED) [Concomitant]
     Active Substance: CALCIUM
     Route: 048
  5. OS-CAL (CALCIUM CARBONATE) [Concomitant]
     Dosage: 1500 MG, QD
     Route: 048
  6. FOSAMAX PLUS D [Suspect]
     Active Substance: ALENDRONATE SODIUM\CHOLECALCIFEROL
     Indication: OSTEOPOROSIS
     Dosage: 70/2800 MG
     Route: 048
     Dates: start: 20070525, end: 200811
  7. FOSAMAX [Suspect]
     Active Substance: ALENDRONATE SODIUM
     Dosage: 70 MG, UNK
     Route: 048
     Dates: start: 200904, end: 2011

REACTIONS (54)
  - Low turnover osteopathy [Unknown]
  - Viral infection [Unknown]
  - Supraventricular extrasystoles [Unknown]
  - Hypoxia [Recovered/Resolved]
  - Pneumonia [Unknown]
  - Lower gastrointestinal haemorrhage [Unknown]
  - Urinary tract infection bacterial [Recovered/Resolved]
  - Adverse drug reaction [Unknown]
  - Fall [Unknown]
  - Femur fracture [Unknown]
  - Stress fracture [Unknown]
  - Nephrolithiasis [Unknown]
  - Fatigue [Unknown]
  - Gallbladder disorder [Unknown]
  - Cataract [Unknown]
  - Hypotension [Unknown]
  - Breast cancer [Unknown]
  - Urinary tract infection [Unknown]
  - Haemorrhage [Unknown]
  - Leukopenia [Not Recovered/Not Resolved]
  - Neurodermatitis [Not Recovered/Not Resolved]
  - Sciatica [Unknown]
  - Hypercholesterolaemia [Unknown]
  - Upper respiratory tract infection [Unknown]
  - IVth nerve paresis [Unknown]
  - Cataract operation [Unknown]
  - Femur fracture [Unknown]
  - Osteoporosis [Unknown]
  - Breast cancer [Unknown]
  - Hypertension [Unknown]
  - Seborrhoea [Unknown]
  - Anaemia [Unknown]
  - Musculoskeletal pain [Unknown]
  - Osteoarthritis [Unknown]
  - Cataract [Unknown]
  - Intramedullary rod insertion [Unknown]
  - Contusion [Unknown]
  - Optic atrophy [Unknown]
  - Diverticulum intestinal [Unknown]
  - Urinary tract infection [Unknown]
  - Cough [Unknown]
  - Hydronephrosis [Unknown]
  - Muscle spasms [Unknown]
  - Arthralgia [Unknown]
  - Viral labyrinthitis [Unknown]
  - Osteoarthritis [Unknown]
  - Mastectomy [Unknown]
  - Femur fracture [Unknown]
  - Open reduction of fracture [Unknown]
  - Rotator cuff syndrome [Unknown]
  - Glaucoma [Unknown]
  - Cardiac failure congestive [Unknown]
  - Cataract [Unknown]
  - Hyperlipidaemia [Unknown]

NARRATIVE: CASE EVENT DATE: 19990505
